FAERS Safety Report 13010008 (Version 2)
Quarter: 2016Q4

REPORT INFORMATION
  Report Type: Report from Study
  Country: RO (occurrence: RO)
  Receive Date: 20161208
  Receipt Date: 20161215
  Transmission Date: 20170207
  Serious: Yes (Hospitalization)
  Sender: FDA-Public Use
  Company Number: RO-KADMON PHARMACEUTICALS, LLC-KAD201612-004413

PATIENT
  Age: 64 Year
  Sex: Female

DRUGS (8)
  1. RIBAVIRIN 200 MG TABLETS [Suspect]
     Active Substance: RIBAVIRIN
     Indication: HEPATIC CIRRHOSIS
  2. EXVIERA FILM-COATED TABLET [Suspect]
     Active Substance: DASABUVIR SODIUM MONOHYDRATE
     Indication: HEPATITIS C
     Route: 048
     Dates: start: 20161108, end: 20161117
  3. RIBAVIRIN 200 MG TABLETS [Suspect]
     Active Substance: RIBAVIRIN
     Indication: HEPATITIS C
     Route: 048
     Dates: start: 20161108, end: 20161117
  4. HUMALOG [Concomitant]
     Active Substance: INSULIN LISPRO
     Indication: DIABETES MELLITUS
     Route: 051
  5. VIEKIRAX FILM-COATED TABLET [Suspect]
     Active Substance: OMBITASVIR\PARITAPREVIR\RITONAVIR
     Indication: HEPATITIS C
     Route: 048
     Dates: start: 20161108, end: 20161117
  6. VIEKIRAX FILM-COATED TABLET [Suspect]
     Active Substance: OMBITASVIR\PARITAPREVIR\RITONAVIR
     Indication: HEPATIC CIRRHOSIS
  7. EXVIERA FILM-COATED TABLET [Suspect]
     Active Substance: DASABUVIR SODIUM MONOHYDRATE
     Indication: HEPATIC CIRRHOSIS
  8. PRESTARIUM [Concomitant]
     Active Substance: PERINDOPRIL
     Indication: HYPERTENSION
     Route: 048

REACTIONS (13)
  - Vomiting [Not Recovered/Not Resolved]
  - Melaena [Recovered/Resolved]
  - Anaemia [Recovered/Resolved]
  - Faeces discoloured [Not Recovered/Not Resolved]
  - Decreased appetite [Not Recovered/Not Resolved]
  - Ascites [Not Recovered/Not Resolved]
  - Gastrointestinal haemorrhage [Recovered/Resolved]
  - Blood pressure increased [Not Recovered/Not Resolved]
  - Nausea [Not Recovered/Not Resolved]
  - Portal hypertensive gastropathy [Not Recovered/Not Resolved]
  - Weight decreased [Not Recovered/Not Resolved]
  - Hepatic encephalopathy [Recovered/Resolved]
  - Varices oesophageal [Unknown]

NARRATIVE: CASE EVENT DATE: 201611
